FAERS Safety Report 7638718-X (Version None)
Quarter: 2011Q3

REPORT INFORMATION
  Report Type: 
  Country: None (occurrence: None)
  Receive Date: 20110718
  Receipt Date: 20110309
  Transmission Date: 20111222
  Serious: Yes (Hospitalization)
  Sender: FDA-Public Use
  Company Number: 20110309CINRY1871

PATIENT
  Age: 32 Year
  Sex: Female

DRUGS (10)
  1. CINRYZE [Suspect]
     Indication: PROPHYLAXIS
     Dosage: (1000 UNIT, 2 IN 1 WK), INTRAVENOUS, (1000 UNIT, 1 IN 1 WK), INTRAVENOUS, (1000 UNIT, 2 IN 1 WK), IN
     Route: 042
     Dates: start: 20110201, end: 20110301
  2. CINRYZE [Suspect]
     Indication: HEREDITARY ANGIOEDEMA
     Dosage: (1000 UNIT, 2 IN 1 WK), INTRAVENOUS, (1000 UNIT, 1 IN 1 WK), INTRAVENOUS, (1000 UNIT, 2 IN 1 WK), IN
     Route: 042
     Dates: start: 20110201, end: 20110301
  3. CINRYZE [Suspect]
     Indication: PROPHYLAXIS
     Dosage: (1000 UNIT, 2 IN 1 WK), INTRAVENOUS, (1000 UNIT, 1 IN 1 WK), INTRAVENOUS, (1000 UNIT, 2 IN 1 WK), IN
     Route: 042
     Dates: end: 20110201
  4. CINRYZE [Suspect]
     Indication: HEREDITARY ANGIOEDEMA
     Dosage: (1000 UNIT, 2 IN 1 WK), INTRAVENOUS, (1000 UNIT, 1 IN 1 WK), INTRAVENOUS, (1000 UNIT, 2 IN 1 WK), IN
     Route: 042
     Dates: end: 20110201
  5. CINRYZE [Suspect]
     Indication: PROPHYLAXIS
     Dosage: (1000 UNIT, 2 IN 1 WK), INTRAVENOUS, (1000 UNIT, 1 IN 1 WK), INTRAVENOUS, (1000 UNIT, 2 IN 1 WK), IN
     Route: 042
     Dates: start: 20110301
  6. CINRYZE [Suspect]
     Indication: HEREDITARY ANGIOEDEMA
     Dosage: (1000 UNIT, 2 IN 1 WK), INTRAVENOUS, (1000 UNIT, 1 IN 1 WK), INTRAVENOUS, (1000 UNIT, 2 IN 1 WK), IN
     Route: 042
     Dates: start: 20110301
  7. WELLBUTRIN [Concomitant]
  8. ZANTAC [Concomitant]
  9. TOPAMAX [Concomitant]
  10. KLONOPIN [Concomitant]

REACTIONS (3)
  - INAPPROPRIATE SCHEDULE OF DRUG ADMINISTRATION [None]
  - SWELLING FACE [None]
  - HEREDITARY ANGIOEDEMA [None]
